FAERS Safety Report 16900589 (Version 2)
Quarter: 2020Q1

REPORT INFORMATION
  Report Type: Spontaneous
  Country: US (occurrence: US)
  Receive Date: 20191009
  Receipt Date: 20200312
  Transmission Date: 20200409
  Serious: No
  Sender: FDA-Public Use
  Company Number: US-GALDERMA-US19037625

PATIENT
  Age: 34 Year
  Sex: Female

DRUGS (4)
  1. TRI-LUMA [Suspect]
     Active Substance: FLUOCINOLONE ACETONIDE\HYDROQUINONE\TRETINOIN
     Indication: CHLOASMA
     Dosage: 30 G
     Route: 061
     Dates: start: 20190621, end: 201906
  2. SKINCEUTICALS SUNSCREEN [Concomitant]
     Indication: PROPHYLAXIS AGAINST SOLAR RADIATION
     Route: 065
  3. CETAPHIL DAILY FACIAL CLEANSER [Suspect]
     Active Substance: COSMETICS
     Indication: PRODUCT USED FOR UNKNOWN INDICATION
     Route: 061
  4. OIL OF OLAY SENSITIVE PLUS MOISTURIZER [Concomitant]
     Indication: PROPHYLAXIS
     Route: 065

REACTIONS (8)
  - Rash papular [Recovered/Resolved]
  - Skin burning sensation [Recovered/Resolved]
  - Pruritus [Recovered/Resolved]
  - Skin exfoliation [Recovered/Resolved]
  - Pain of skin [Recovered/Resolved]
  - Skin swelling [Recovered/Resolved]
  - Lip swelling [Recovered/Resolved]
  - Blister [Recovered/Resolved]

NARRATIVE: CASE EVENT DATE: 20190622
